FAERS Safety Report 9733978 (Version 1)
Quarter: 2013Q4

REPORT INFORMATION
  Report Type: Spontaneous
  Country: BG (occurrence: BG)
  Receive Date: 20131205
  Receipt Date: 20131205
  Transmission Date: 20140711
  Serious: Yes (Hospitalization, Other)
  Sender: FDA-Public Use
  Company Number: PHHY2013BG140246

PATIENT
  Age: 14 Month
  Sex: Male

DRUGS (1)
  1. VALPROIC ACID [Suspect]

REACTIONS (5)
  - Neurotoxicity [Recovered/Resolved]
  - Somnolence [Recovered/Resolved]
  - Apathy [Recovered/Resolved]
  - General physical health deterioration [Recovered/Resolved]
  - Intentional drug misuse [Unknown]
